FAERS Safety Report 5211723-9 (Version None)
Quarter: 2007Q1

REPORT INFORMATION
  Report Type: 
  Country: None (occurrence: None)
  Receive Date: 20070118
  Receipt Date: 20070109
  Transmission Date: 20070707
  Serious: Yes (Other)
  Sender: FDA-Public Use
  Company Number: PHBS2006BE20169

PATIENT
  Sex: Female

DRUGS (1)
  1. FEMARA [Suspect]
     Route: 048
     Dates: end: 20061001

REACTIONS (3)
  - LYMPHANGITIS [None]
  - PRURITUS [None]
  - RASH [None]
